FAERS Safety Report 20087853 (Version 3)
Quarter: 2022Q1

REPORT INFORMATION
  Report Type: Report from Study
  Country: CZ (occurrence: CZ)
  Receive Date: 20211118
  Receipt Date: 20220209
  Transmission Date: 20220423
  Serious: Yes (Other)
  Sender: FDA-Public Use
  Company Number: CZ-CELGENE-CZE-20210807895

PATIENT
  Age: 29 Year
  Sex: Female

DRUGS (12)
  1. OZANIMOD [Suspect]
     Active Substance: OZANIMOD
     Indication: Crohn^s disease
     Route: 048
     Dates: start: 20190925, end: 20210727
  2. OZANIMOD [Suspect]
     Active Substance: OZANIMOD
     Route: 048
     Dates: start: 20210831
  3. BUDESONIDE [Concomitant]
     Active Substance: BUDESONIDE
     Indication: Crohn^s disease
     Dosage: 5 MILLIGRAM
     Route: 048
  4. ASACOL [Concomitant]
     Active Substance: MESALAMINE
     Indication: Crohn^s disease
     Dosage: 800 MILLIGRAM
     Route: 065
     Dates: start: 201810
  5. paralen [Concomitant]
     Indication: Adverse event
     Route: 048
     Dates: start: 201810
  6. METRONIDAZOLE [Concomitant]
     Active Substance: METRONIDAZOLE
     Indication: Crohn^s disease
     Dosage: 1200 MILLIGRAM
     Route: 048
     Dates: start: 20200731, end: 20200809
  7. MIDAZOLAM [Concomitant]
     Active Substance: MIDAZOLAM
     Indication: Product used for unknown indication
     Dosage: 2.5 MILLIGRAM
     Route: 041
     Dates: start: 20200903, end: 20200903
  8. NALBUPHINE [Concomitant]
     Active Substance: NALBUPHINE
     Indication: Product used for unknown indication
     Dosage: 8 MILLIGRAM
     Route: 041
     Dates: start: 20200903
  9. PICOPREP [Concomitant]
     Active Substance: ANHYDROUS CITRIC ACID\MAGNESIUM OXIDE\SODIUM PICOSULFATE
     Indication: Product used for unknown indication
     Dosage: 2 SACHET
     Route: 048
     Dates: start: 20200902, end: 20200903
  10. BETAMETHASONE DIPROPIONATE\GENTAMICIN SULFATE [Concomitant]
     Active Substance: BETAMETHASONE DIPROPIONATE\GENTAMICIN SULFATE
     Indication: Adverse event
     Dosage: 0.6
     Route: 061
     Dates: start: 20201123
  11. Vigantol [Concomitant]
     Indication: Prophylaxis
     Dosage: 20
     Route: 048
     Dates: start: 20210210
  12. LOPERAMIDE [Concomitant]
     Active Substance: LOPERAMIDE
     Indication: Product used for unknown indication
     Dosage: 1
     Route: 048
     Dates: start: 201805

REACTIONS (2)
  - Abortion spontaneous [Recovered/Resolved]
  - Pregnancy [Unknown]

NARRATIVE: CASE EVENT DATE: 20210728
